FAERS Safety Report 7763409-4 (Version None)
Quarter: 2011Q3

REPORT INFORMATION
  Report Type: 
  Country: None (occurrence: None)
  Receive Date: 20110920
  Receipt Date: 20110713
  Transmission Date: 20111222
  Serious: Yes (Other)
  Sender: FDA-Public Use
  Company Number: FR-ACTELION-A-CH2011-53739

PATIENT
  Age: 36 Year
  Sex: Female

DRUGS (2)
  1. ZAVESCA [Suspect]
     Dosage: UNK
     Route: 048
     Dates: start: 20080401, end: 20081001
  2. ZAVESCA [Suspect]
     Indication: GAUCHER'S DISEASE
     Dosage: UNK
     Route: 048
     Dates: start: 20050613, end: 20070215

REACTIONS (4)
  - DRUG TOLERANCE DECREASED [None]
  - DIARRHOEA [None]
  - TREMOR [None]
  - CACHEXIA [None]
